FAERS Safety Report 6458632-5 (Version None)
Quarter: 2009Q4

REPORT INFORMATION
  Report Type: 
  Country: None (occurrence: None)
  Receive Date: 20091127
  Receipt Date: 20091113
  Transmission Date: 20100525
  Serious: Yes (Hospitalization, Disabling, Other)
  Sender: FDA-Public Use
  Company Number: US-ELI_LILLY_AND_COMPANY-US200909005506

PATIENT
  Sex: Female

DRUGS (11)
  1. ZYPREXA [Suspect]
     Indication: PSYCHOTIC BEHAVIOUR
     Dosage: 10 MG, DAILY (1/D)
     Route: 065
     Dates: start: 19990101
  2. ZYPREXA [Suspect]
     Dosage: 20 MG, DAILY (1/D)
     Route: 065
  3. ZYPREXA [Suspect]
     Dosage: 300 MG, UNK
  4. STRATTERA [Suspect]
     Indication: ATTENTION DEFICIT/HYPERACTIVITY DISORDER
     Dosage: 25 MG, 3/D
     Route: 065
     Dates: start: 20090801
  5. FLUOXETINE [Concomitant]
  6. VALIUM [Concomitant]
     Dosage: 1 D/F, UNK
  7. VALIUM [Concomitant]
     Dosage: 600 MG, UNK
  8. RESTORIL [Concomitant]
  9. LEVOXYL [Concomitant]
  10. LIPITOR [Concomitant]
  11. NEURONTIN [Concomitant]

REACTIONS (11)
  - CONFUSIONAL STATE [None]
  - DEPRESSION [None]
  - DISABILITY [None]
  - DRUG INEFFECTIVE [None]
  - HYPERHIDROSIS [None]
  - INTENTIONAL OVERDOSE [None]
  - MEMORY IMPAIRMENT [None]
  - MENTAL DISORDER [None]
  - SUICIDAL IDEATION [None]
  - SUICIDE ATTEMPT [None]
  - SURGERY [None]
